FAERS Safety Report 11220198 (Version 1)
Quarter: 2015Q2

REPORT INFORMATION
  Report Type: Spontaneous
  Country: None (occurrence: None)
  Receive Date: 20150624
  Receipt Date: 20150624
  Transmission Date: 20150821
  Serious: No
  Sender: FDA-Public Use
  Company Number: None

PATIENT
  Age: 68 Year
  Sex: Male
  Weight: 79.38 kg

DRUGS (1)
  1. FINASTERIDE. [Suspect]
     Active Substance: FINASTERIDE
     Dosage: 1 PILL ONCE DAILY
     Dates: start: 20131101, end: 20141101

REACTIONS (5)
  - Prostate cancer [None]
  - Anorgasmia [None]
  - Pollakiuria [None]
  - Prostatomegaly [None]
  - Semen volume decreased [None]
